FAERS Safety Report 16238711 (Version 2)
Quarter: 2019Q2

REPORT INFORMATION
  Report Type: Spontaneous
  Country: US (occurrence: US)
  Receive Date: 20190425
  Receipt Date: 20190603
  Transmission Date: 20190711
  Serious: No
  Sender: FDA-Public Use
  Company Number: PHEH2019US017287

PATIENT
  Sex: Female

DRUGS (2)
  1. LENVATINIB [Suspect]
     Active Substance: LENVATINIB
     Indication: BREAST CANCER FEMALE
     Dosage: 20 MG, QD
     Route: 048
     Dates: start: 20190405
  2. AFINITOR [Suspect]
     Active Substance: EVEROLIMUS
     Indication: BREAST CANCER FEMALE
     Dosage: 5 MG, UNK
     Route: 065

REACTIONS (8)
  - Abdominal pain [Unknown]
  - Abdominal pain upper [Unknown]
  - Liver function test increased [Not Recovered/Not Resolved]
  - Pyrexia [Unknown]
  - Eating disorder [Unknown]
  - Pain [Unknown]
  - Nausea [Unknown]
  - Hepatic pain [Unknown]
